FAERS Safety Report 6566293-X (Version None)
Quarter: 2010Q1

REPORT INFORMATION
  Report Type: 
  Country: None (occurrence: None)
  Receive Date: 20100202
  Receipt Date: 20100129
  Transmission Date: 20100710
  Serious: Yes (Death)
  Sender: FDA-Public Use
  Company Number: US-ASTRAZENECA-2009SE20695

PATIENT
  Age: 567 Month
  Sex: Female
  Weight: 59 kg

DRUGS (2)
  1. SYMBICORT [Suspect]
     Indication: CHRONIC OBSTRUCTIVE PULMONARY DISEASE
     Route: 055
     Dates: start: 20081101, end: 20090201
  2. ADVAIR DISKUS 100/50 [Concomitant]
     Dates: start: 20090401

REACTIONS (2)
  - LUNG INFECTION [None]
  - PNEUMONIA [None]
